FAERS Safety Report 13798339 (Version 13)
Quarter: 2019Q2

REPORT INFORMATION
  Report Type: Report from Study
  Country: DE (occurrence: DE)
  Receive Date: 20170727
  Receipt Date: 20190614
  Transmission Date: 20190711
  Serious: Yes (Death, Life-Threatening, Hospitalization, Other)
  Sender: FDA-Public Use
  Company Number: PHHY2017DE108755

PATIENT
  Sex: Male
  Weight: 85 kg

DRUGS (12)
  1. ENTRESTO [Suspect]
     Active Substance: SACUBITRIL\VALSARTAN
     Dosage: 1 DF (49MG OF SACUBITRIL /51MG OF VALSARTAN), BID
     Route: 048
     Dates: start: 20170717, end: 20170804
  2. XARELTO [Concomitant]
     Active Substance: RIVAROXABAN
     Indication: ATRIAL FIBRILLATION
     Dosage: 15 MG, QD
     Route: 048
     Dates: start: 20120131
  3. NEBIVOLOL. [Concomitant]
     Active Substance: NEBIVOLOL
     Indication: CORONARY ARTERY DISEASE
  4. CANDESARTAN. [Concomitant]
     Active Substance: CANDESARTAN
     Indication: CORONARY ARTERY DISEASE
     Dosage: 4 DF, UNK
     Route: 048
     Dates: start: 20170804
  5. ALLOPURINOL. [Concomitant]
     Active Substance: ALLOPURINOL
     Indication: OEDEMA
     Dosage: 150 MG, QD
     Route: 048
     Dates: start: 20150710, end: 20170715
  6. SPIRONOLACTONE. [Concomitant]
     Active Substance: SPIRONOLACTONE
     Indication: OEDEMA
     Dosage: 25 MG, QD
     Route: 048
     Dates: start: 20150401, end: 20170715
  7. ENTRESTO [Suspect]
     Active Substance: SACUBITRIL\VALSARTAN
     Indication: CARDIAC FAILURE
     Dosage: 100 MG (49MG OF SACUBITRIL AND 51MG OF VALSARTAN), BID
     Route: 048
     Dates: start: 20160511, end: 20161206
  8. TORASEMIDE [Concomitant]
     Active Substance: TORSEMIDE
     Indication: OEDEMA
     Dosage: 20 MG, QD
     Route: 048
     Dates: start: 20150320
  9. TORASEMIDE [Concomitant]
     Active Substance: TORSEMIDE
     Indication: CARDIAC FAILURE
  10. CANDESARTAN. [Concomitant]
     Active Substance: CANDESARTAN
     Indication: HYPERTENSION
  11. ENTRESTO [Suspect]
     Active Substance: SACUBITRIL\VALSARTAN
     Dosage: 200 MG (97MG OF SACUBITRIL AND 103MG OF VALSARTAN), QD
     Route: 048
     Dates: start: 20161207, end: 20170716
  12. NEBIVOLOL. [Concomitant]
     Active Substance: NEBIVOLOL
     Indication: HYPERTENSION
     Dosage: 2.5 MG, QD
     Route: 048
     Dates: start: 20150715

REACTIONS (10)
  - Concomitant disease aggravated [Recovering/Resolving]
  - Hepatic encephalopathy [Unknown]
  - Myocardial strain [Unknown]
  - Chronic kidney disease [Recovering/Resolving]
  - Ascites [Recovering/Resolving]
  - Disorientation [Recovering/Resolving]
  - Cardiac failure [Fatal]
  - Cardiac cirrhosis [Fatal]
  - Fluid balance positive [Unknown]
  - Dyspnoea [Recovering/Resolving]

NARRATIVE: CASE EVENT DATE: 20170714
